FAERS Safety Report 9811025 (Version 4)
Quarter: 2015Q3

REPORT INFORMATION
  Report Type: Spontaneous
  Country: US (occurrence: US)
  Receive Date: 20140110
  Receipt Date: 20150727
  Transmission Date: 20151125
  Serious: Yes (Other)
  Sender: FDA-Public Use
  Company Number: US-SANOFI-AVENTIS-2013SA003996

PATIENT
  Age: 85 Year
  Sex: Male

DRUGS (2)
  1. PLAVIX [Suspect]
     Active Substance: CLOPIDOGREL BISULFATE
     Indication: TRANSIENT ISCHAEMIC ATTACK
     Route: 048
     Dates: start: 20110223, end: 20110227
  2. PLAVIX [Suspect]
     Active Substance: CLOPIDOGREL BISULFATE
     Indication: CEREBROVASCULAR ACCIDENT
     Route: 048
     Dates: start: 20110223, end: 20110227

REACTIONS (4)
  - Cerebral haemorrhage [Unknown]
  - Haemorrhagic stroke [Unknown]
  - Aphasia [Unknown]
  - Multiple injuries [Unknown]

NARRATIVE: CASE EVENT DATE: 201102
